FAERS Safety Report 8001947-X (Version None)
Quarter: 2011Q4

REPORT INFORMATION
  Report Type: 
  Country: None (occurrence: None)
  Receive Date: 20111222
  Receipt Date: 20111215
  Transmission Date: 20120403
  Serious: Yes (Hospitalization, Other)
  Sender: FDA-Public Use
  Company Number: AU-ROCHE-1014712

PATIENT
  Sex: Female

DRUGS (3)
  1. PACLITAXEL [Suspect]
     Indication: BREAST CANCER
     Dosage: 3 WEEKS
     Route: 042
     Dates: start: 20111015
  2. HERCEPTIN [Suspect]
     Indication: BREAST CANCER
     Dosage: DOSE REDUCED TO HALF THE INFUSION RATE
     Route: 042
     Dates: start: 20111115, end: 20111115
  3. DEXAMETHASONE [Concomitant]
     Indication: PREMEDICATION

REACTIONS (7)
  - HYPERSENSITIVITY [None]
  - CHILLS [None]
  - HYPERTENSION [None]
  - TACHYCARDIA [None]
  - DYSPNOEA [None]
  - TROPONIN INCREASED [None]
  - FLUSHING [None]
